FAERS Safety Report 12059145 (Version 1)
Quarter: 2016Q1

REPORT INFORMATION
  Report Type: Report from Study
  Country: NL (occurrence: NL)
  Receive Date: 20160210
  Receipt Date: 20160210
  Transmission Date: 20160526
  Serious: Yes (Other)
  Sender: FDA-Public Use
  Company Number: NL-BRISTOL-MYERS SQUIBB COMPANY-13889043

PATIENT
  Sex: Female

DRUGS (2)
  1. METFORMIN HYDROCHLORIDE. [Suspect]
     Active Substance: METFORMIN HYDROCHLORIDE
     Indication: POLYCYSTIC OVARIES
     Dosage: 2000 MG, QD
     Route: 048
  2. EXTERNAL-CLOMIPHENE [Suspect]
     Active Substance: CLOMIPHENE
     Indication: POLYCYSTIC OVARIES
     Dosage: 50 MG, QD
     Route: 048

REACTIONS (3)
  - Pregnancy [Recovered/Resolved]
  - Normal newborn [Unknown]
  - Gestational hypertension [Unknown]
